FAERS Safety Report 6386863-1 (Version None)
Quarter: 2009Q4

REPORT INFORMATION
  Report Type: 
  Country: None (occurrence: None)
  Receive Date: 20091001
  Receipt Date: 20091001
  Transmission Date: 20100525
  Serious: Yes (Other)
  Sender: FDA-Public Use
  Company Number: None

PATIENT
  Age: 72 Year
  Sex: Female
  Weight: 71 kg

DRUGS (2)
  1. PHOSLD 667G UNKNOWN [Suspect]
     Indication: BLOOD PHOSPHORUS INCREASED
     Dosage: 3 TABS 3X DAY ORAL
     Route: 048
     Dates: start: 20081201, end: 20090801
  2. PHOSLD 667G UNKNOWN [Suspect]
     Indication: RENAL FAILURE CHRONIC
     Dosage: 3 TABS 3X DAY ORAL
     Route: 048
     Dates: start: 20081201, end: 20090801

REACTIONS (3)
  - DRUG INTOLERANCE [None]
  - PRODUCT SIZE ISSUE [None]
  - VOMITING [None]
